FAERS Safety Report 25970306 (Version 1)
Quarter: 2025Q4

REPORT INFORMATION
  Report Type: Spontaneous
  Country: JP (occurrence: JP)
  Receive Date: 20251028
  Receipt Date: 20251028
  Transmission Date: 20260117
  Serious: Yes (Hospitalization)
  Sender: NOVO NORDISK
  Company Number: JP-NOVOPROD-1544192

PATIENT
  Age: 86 Year
  Sex: Female

DRUGS (3)
  1. LEVEMIR [Suspect]
     Active Substance: INSULIN DETEMIR
     Indication: Diabetes mellitus
     Dosage: 14(0-0-0-14) UT/DAY, QD
     Route: 058
  2. NOVOLIN R [Suspect]
     Active Substance: INSULIN HUMAN
     Dosage: 36.00(10-16-10-0) UT/DAY, TID
     Route: 058
     Dates: start: 2013
  3. NOVOLIN R [Suspect]
     Active Substance: INSULIN HUMAN
     Indication: Diabetes mellitus
     Dosage: 40 (10-16-14-0) UT/DAY
     Route: 058

REACTIONS (1)
  - Putamen haemorrhage [Unknown]

NARRATIVE: CASE EVENT DATE: 20130420
